FAERS Safety Report 7254889-1 (Version None)
Quarter: 2011Q1

REPORT INFORMATION
  Report Type: 
  Country: None (occurrence: None)
  Receive Date: 20110129
  Receipt Date: 20100222
  Transmission Date: 20110831
  Serious: No
  Sender: FDA-Public Use
  Company Number: US-ABBOTT-10P-163-0628606-00

PATIENT
  Sex: Male

DRUGS (5)
  1. HYDROCHLOROTHIAZIDE [Concomitant]
     Indication: HYPERTENSION
  2. UNKNOWN CHOLESTEROL MEDICATION [Concomitant]
     Indication: BLOOD CHOLESTEROL INCREASED
  3. UNKNOWN TOPICAL CREAMS [Concomitant]
     Indication: PRODUCT USED FOR UNKNOWN INDICATION
  4. UNKNOWN GOUT MEDICATION [Concomitant]
     Indication: GOUT
  5. HUMIRA [Suspect]
     Indication: PSORIASIS
     Dates: start: 20090828

REACTIONS (4)
  - HYPERKERATOSIS [None]
  - NAIL HYPERTROPHY [None]
  - NAIL DYSTROPHY [None]
  - PSORIASIS [None]
